FAERS Safety Report 12877407 (Version 1)
Quarter: 2016Q4

REPORT INFORMATION
  Report Type: Spontaneous
  Country: US (occurrence: US)
  Receive Date: 20161024
  Receipt Date: 20161024
  Transmission Date: 20170207
  Serious: No
  Sender: FDA-Public Use
  Company Number: US-JAZZ-2016-US-015026

PATIENT
  Age: 37 Year
  Sex: Female

DRUGS (33)
  1. XANAX [Concomitant]
     Active Substance: ALPRAZOLAM
  2. NORVASC [Concomitant]
     Active Substance: AMLODIPINE BESYLATE
  3. HYDROCHLOROTHIAZIDE. [Concomitant]
     Active Substance: HYDROCHLOROTHIAZIDE
  4. GABAPENTIN. [Concomitant]
     Active Substance: GABAPENTIN
  5. ALLEGRA ALLERGY [Concomitant]
     Active Substance: FEXOFENADINE HYDROCHLORIDE
  6. XYREM [Suspect]
     Active Substance: SODIUM OXYBATE
     Indication: CATAPLEXY
     Dosage: DOSE ADJUSTMENTS
     Route: 048
     Dates: start: 201209, end: 201305
  7. CRESTOR [Concomitant]
     Active Substance: ROSUVASTATIN CALCIUM
  8. BACLOFEN. [Concomitant]
     Active Substance: BACLOFEN
  9. NASACORT [Concomitant]
     Active Substance: TRIAMCINOLONE ACETONIDE
  10. XYREM [Suspect]
     Active Substance: SODIUM OXYBATE
     Indication: NARCOLEPSY
     Dosage: 3 G, BID
     Route: 048
     Dates: start: 201206, end: 201209
  11. RITALIN [Concomitant]
     Active Substance: METHYLPHENIDATE HYDROCHLORIDE
  12. NUVIGIL [Concomitant]
     Active Substance: ARMODAFINIL
  13. SPIRONOLACTONE. [Concomitant]
     Active Substance: SPIRONOLACTONE
  14. VITAMIN D [Concomitant]
     Active Substance: CHOLECALCIFEROL
  15. XYREM [Suspect]
     Active Substance: SODIUM OXYBATE
     Dosage: 4 G, BID
     Route: 048
     Dates: start: 201305
  16. IBUPROFEN. [Concomitant]
     Active Substance: IBUPROFEN
  17. VENTOLIN HFA [Concomitant]
     Active Substance: ALBUTEROL SULFATE
  18. TOBRADEX [Concomitant]
     Active Substance: DEXAMETHASONE\TOBRAMYCIN
  19. VICODIN ES [Concomitant]
     Active Substance: ACETAMINOPHEN\HYDROCODONE BITARTRATE
  20. PROAIR HFA [Concomitant]
     Active Substance: ALBUTEROL SULFATE
  21. LIDOCAINE. [Concomitant]
     Active Substance: LIDOCAINE
  22. POLYTRIM [Concomitant]
     Active Substance: POLYMYXIN B SULFATE\TRIMETHOPRIM SULFATE
  23. EPIPEN [Concomitant]
     Active Substance: EPINEPHRINE
  24. NUVARING [Concomitant]
     Active Substance: ETHINYL ESTRADIOL\ETONOGESTREL
  25. ATORVASTATIN [Concomitant]
     Active Substance: ATORVASTATIN
  26. MOBIC [Concomitant]
     Active Substance: MELOXICAM
  27. ALPRAZOLAM. [Concomitant]
     Active Substance: ALPRAZOLAM
  28. SINGULAIR [Concomitant]
     Active Substance: MONTELUKAST SODIUM
  29. NORCO [Concomitant]
     Active Substance: ACETAMINOPHEN\HYDROCODONE BITARTRATE
  30. CLOBETASOL [Concomitant]
     Active Substance: CLOBETASOL
  31. CLINDAMYCIN PHOSPHATE. [Concomitant]
     Active Substance: CLINDAMYCIN PHOSPHATE
  32. PROZAC [Concomitant]
     Active Substance: FLUOXETINE HYDROCHLORIDE
  33. SYNTHROID [Concomitant]
     Active Substance: LEVOTHYROXINE SODIUM

REACTIONS (2)
  - Arthritis [Unknown]
  - Movement disorder [Unknown]

NARRATIVE: CASE EVENT DATE: 201505
